FAERS Safety Report 7108972-1 (Version None)
Quarter: 2010Q4

REPORT INFORMATION
  Report Type: 
  Country: None (occurrence: None)
  Receive Date: 20101117
  Receipt Date: 20101110
  Transmission Date: 20110411
  Serious: Yes (Life-Threatening, Hospitalization)
  Sender: FDA-Public Use
  Company Number: PHHO2010JP10085

PATIENT
  Sex: Female
  Weight: 47 kg

DRUGS (16)
  1. AFINITOR [Suspect]
     Indication: METASTATIC GASTRIC CANCER
     Dosage: CODE NOT BROKEN
     Route: 048
     Dates: start: 20100415, end: 20100701
  2. BLINDED NO TREATMENT RECEIVED NOMED [Suspect]
     Indication: METASTATIC GASTRIC CANCER
     Dosage: CODE NOT BROKEN
     Route: 048
     Dates: start: 20100415, end: 20100701
  3. PLACEBO [Suspect]
     Indication: METASTATIC GASTRIC CANCER
     Dosage: CODE NOT BROKEN
     Route: 048
     Dates: start: 20100415, end: 20100701
  4. BLINDED PLACEBO PLACEBO [Suspect]
     Indication: METASTATIC GASTRIC CANCER
     Dosage: CODE NOT BROKEN
     Route: 048
     Dates: start: 20100415, end: 20100701
  5. VOLTAREN [Suspect]
     Dosage: UNK
     Route: 048
     Dates: start: 20061220, end: 20100701
  6. CALONAL [Suspect]
  7. MOBIC [Suspect]
  8. TAKEPRON [Concomitant]
  9. LASIX [Concomitant]
  10. SELBEX [Concomitant]
  11. HIRUDOID [Concomitant]
  12. NERISONA [Concomitant]
  13. AMARYL [Concomitant]
  14. ENSURE [Concomitant]
  15. HACHIAZULE [Concomitant]
  16. DEXALTIN [Concomitant]

REACTIONS (7)
  - ANAEMIA [None]
  - BLOOD PRESSURE DECREASED [None]
  - HAEMATEMESIS [None]
  - HAEMOSTASIS [None]
  - MELAENA [None]
  - THERAPEUTIC EMBOLISATION [None]
  - TUMOUR HAEMORRHAGE [None]
